FAERS Safety Report 4617379-8 (Version None)
Quarter: 2005Q1

REPORT INFORMATION
  Report Type: 
  Country: None (occurrence: None)
  Receive Date: 20050323
  Receipt Date: 20050318
  Transmission Date: 20050727
  Serious: Yes (Hospitalization)
  Sender: FDA-Public Use
  Company Number: 05-03-0458

PATIENT
  Age: 41 Year
  Sex: Male

DRUGS (1)
  1. CLOZAPINE [Suspect]
     Indication: SCHIZOAFFECTIVE DISORDER
     Dosage: 75-400MG QD ORAL
     Route: 048
     Dates: start: 20031001

REACTIONS (2)
  - DRUG ABUSER [None]
  - PSYCHOTIC DISORDER [None]
